FAERS Safety Report 10580435 (Version 2)
Quarter: 2015Q1

REPORT INFORMATION
  Report Type: Spontaneous
  Country: FR (occurrence: FR)
  Receive Date: 20141112
  Receipt Date: 20150119
  Transmission Date: 20150720
  Serious: Yes (Other)
  Sender: FDA-Public Use
  Company Number: FR-AMGEN-FRASP2014086538

PATIENT
  Age: 61 Year
  Sex: Female

DRUGS (6)
  1. XGEVA [Suspect]
     Active Substance: DENOSUMAB
     Indication: METASTASES TO BONE
     Dosage: 120 MG, 1.7 ML, Q4WK
     Route: 058
     Dates: start: 20130806, end: 20140909
  2. LOXAPAC                            /00401801/ [Concomitant]
     Active Substance: LOXAPINE SUCCINATE
     Indication: DEPRESSION
  3. EUPANTOL [Concomitant]
     Active Substance: PANTOPRAZOLE SODIUM
     Indication: GASTRIC DISORDER
     Dosage: TABLET
     Route: 048
  4. LEVOTHYROX [Concomitant]
     Active Substance: LEVOTHYROXINE
     Indication: HYPOTHYROIDISM
     Dosage: 25 MUG, UNK
  5. XELODA [Concomitant]
     Active Substance: CAPECITABINE
     Indication: BREAST CANCER METASTATIC
     Dosage: TABLET, 14 DAYS
     Route: 048
     Dates: start: 201308, end: 201408
  6. ZOLOFT [Concomitant]
     Active Substance: SERTRALINE HYDROCHLORIDE
     Indication: DEPRESSION
     Dosage: TABLET
     Route: 048

REACTIONS (3)
  - Osteonecrosis of jaw [Recovering/Resolving]
  - Nodule [Recovered/Resolved]
  - Tooth infection [Unknown]

NARRATIVE: CASE EVENT DATE: 20140903
